FAERS Safety Report 9320432 (Version 2)
Quarter: 2013Q3

REPORT INFORMATION
  Report Type: Spontaneous
  Country: JP (occurrence: JP)
  Receive Date: 20130530
  Receipt Date: 20130709
  Transmission Date: 20140515
  Serious: No
  Sender: FDA-Public Use
  Company Number: JP-B.I. PHARMACEUTICALS,INC./RIDGEFIELD-2013-BI-14992NB

PATIENT
  Age: 62 Year
  Sex: Male
  Weight: 46 kg

DRUGS (13)
  1. TRAZENTA [Suspect]
     Indication: DIABETES MELLITUS
     Dosage: 5 MG
     Route: 048
     Dates: start: 20130510, end: 20130517
  2. HUMALOG [Suspect]
     Indication: DIABETES MELLITUS
     Dosage: 14 U
     Route: 058
  3. LANTUS [Suspect]
     Indication: DIABETES MELLITUS
     Dosage: 4 U
     Route: 058
  4. PLAVIX [Concomitant]
     Indication: THROMBOSIS PROPHYLAXIS
     Dosage: 50 MG
     Route: 048
  5. BAYASPIRIN [Concomitant]
     Indication: THROMBOSIS PROPHYLAXIS
     Dosage: 100 MG
     Route: 048
     Dates: start: 20130408
  6. PLATIBIT [Concomitant]
     Indication: RENAL FAILURE CHRONIC
     Dosage: 0.25 MCG
     Route: 048
  7. ZYLORIC [Concomitant]
     Indication: HYPERURICAEMIA
     Dosage: 100 MG
     Route: 048
  8. RENAGEL [Concomitant]
     Indication: RENAL FAILURE CHRONIC
     Dosage: 3000 MG
     Route: 048
  9. METHYCOBAL [Concomitant]
     Indication: NEUROPATHY PERIPHERAL
     Dosage: 1500 MCG
     Route: 048
  10. POLYFUL [Concomitant]
     Indication: CONSTIPATION
     Dosage: 1500 MG
     Route: 048
  11. JUVELA N [Concomitant]
     Indication: NEUROPATHY PERIPHERAL
     Dosage: 600 MG
     Route: 048
  12. AZILVA [Concomitant]
     Indication: HYPERTENSION
     Dosage: 40 MG
     Route: 048
  13. TOWARAT-CR [Concomitant]
     Indication: HYPERTENSION
     Dosage: 20 MG
     Route: 048

REACTIONS (2)
  - Hypoglycaemia [Recovered/Resolved]
  - Hypoglycaemia [Recovered/Resolved]
